FAERS Safety Report 6195385-2 (Version None)
Quarter: 2009Q2

REPORT INFORMATION
  Report Type: 
  Country: None (occurrence: None)
  Receive Date: 20090519
  Receipt Date: 20090511
  Transmission Date: 20091009
  Serious: Yes (Other)
  Sender: FDA-Public Use
  Company Number: US-GENENTECH-283053

PATIENT
  Age: 64 Year
  Sex: Male

DRUGS (4)
  1. RAPTIVA [Suspect]
     Indication: PSORIATIC ARTHROPATHY
     Dosage: 1 MG/KG, 1/WEEK
  2. RAPTIVA [Suspect]
     Indication: PSORIASIS
  3. ETANERCEPT [Suspect]
     Indication: PSORIATIC ARTHROPATHY
     Dosage: 50 MG, 1/WEEK
  4. ETANERCEPT [Suspect]
     Indication: PSORIASIS

REACTIONS (2)
  - ACTINIC KERATOSIS [None]
  - BASAL CELL CARCINOMA [None]
